FAERS Safety Report 5761133-0 (Version None)
Quarter: 2008Q2

REPORT INFORMATION
  Report Type: 
  Country: None (occurrence: None)
  Receive Date: 20080606
  Receipt Date: 20080529
  Transmission Date: 20081010
  Serious: Yes (Other)
  Sender: FDA-Public Use
  Company Number: US-BAYER-200824511NA

PATIENT
  Sex: Female

DRUGS (2)
  1. AVELOX [Suspect]
     Indication: UPPER RESPIRATORY TRACT INFECTION
     Dosage: TOTAL DAILY DOSE: 400 MG  UNIT DOSE: 400 MG
     Route: 048
     Dates: start: 20080513
  2. AVELOX [Suspect]
     Dosage: TOTAL DAILY DOSE: 400 MG  UNIT DOSE: 400 MG
     Route: 048
     Dates: start: 20080503, end: 20080506

REACTIONS (9)
  - ANAPHYLACTIC REACTION [None]
  - CHEST PAIN [None]
  - FEELING HOT [None]
  - HYPERHIDROSIS [None]
  - MUSCLE SPASMS [None]
  - PRURITUS [None]
  - RASH [None]
  - STOMACH DISCOMFORT [None]
  - THROAT TIGHTNESS [None]
